FAERS Safety Report 19200355 (Version 2)
Quarter: 2021Q2

REPORT INFORMATION
  Report Type: Spontaneous
  Country: US (occurrence: US)
  Receive Date: 20210430
  Receipt Date: 20210506
  Transmission Date: 20210717
  Serious: Yes (Hospitalization)
  Sender: FDA-Public Use
  Company Number: US-MYLANLABS-2021M1025512

PATIENT
  Age: 57 Year
  Sex: Male

DRUGS (15)
  1. CEFIDEROCOL. [Concomitant]
     Active Substance: CEFIDEROCOL
     Indication: OSTEOMYELITIS BACTERIAL
     Dosage: 2 GRAM, Q8H; INFUSED AT EVERY 3 HOURS; HE RECEIVED CEFIDEROCOL FOR A TOTAL OF 109 DAYS
  2. POLYMYXIN B. [Suspect]
     Active Substance: POLYMYXIN B
     Indication: OSTEOMYELITIS BACTERIAL
     Dosage: 2.5 MILLIGRAM/KILOGRAM LOADING DOSE
     Route: 042
  3. VANCOMYCIN [Concomitant]
     Active Substance: VANCOMYCIN
     Indication: OSTEOMYELITIS BACTERIAL
     Dosage: 1.5 GRAM, Q8H
     Route: 042
  4. MEROPENEM. [Concomitant]
     Active Substance: MEROPENEM
     Indication: OSTEOMYELITIS BACTERIAL
     Dosage: 8 MILLIGRAM/KILOGRAM, QD
     Route: 065
  5. TIGECYCLINE. [Concomitant]
     Active Substance: TIGECYCLINE
     Indication: OSTEOMYELITIS BACTERIAL
     Dosage: 2 GRAM, BID
     Route: 065
  6. DAPTOMYCIN. [Suspect]
     Active Substance: DAPTOMYCIN
     Indication: ENTEROCOCCAL INFECTION
     Dosage: 8 MILLIGRAM/KILOGRAM, QD
     Route: 065
  7. DAPTOMYCIN. [Suspect]
     Active Substance: DAPTOMYCIN
     Indication: CORYNEBACTERIUM INFECTION
     Dosage: 8 MG/KG THE PATIENT AGAIN STARTED RECEIVING 8MG/KG AT AN INTERVAL OF 24 HOURS AFTER SOMETIME
     Route: 065
  8. MINOCYCLINE [Suspect]
     Active Substance: MINOCYCLINE HYDROCHLORIDE
     Indication: OSTEOMYELITIS BACTERIAL
     Dosage: 100 MILLIGRAM, BID
     Route: 042
  9. VANCOMYCIN [Concomitant]
     Active Substance: VANCOMYCIN
     Dosage: 1.25 GRAM, Q8H
     Route: 042
  10. METFORMIN [Concomitant]
     Active Substance: METFORMIN HYDROCHLORIDE
     Indication: TYPE 2 DIABETES MELLITUS
     Route: 065
  11. AMLODIPINE [Concomitant]
     Active Substance: AMLODIPINE BESYLATE
     Indication: HYPERTENSION
     Route: 065
  12. CEFIDEROCOL. [Concomitant]
     Active Substance: CEFIDEROCOL
     Indication: ANTIBIOTIC THERAPY
     Dosage: 1 GRAM, Q8H; INFUSED AT EVERY 3 HOURS
  13. VANCOMYCIN [Concomitant]
     Active Substance: VANCOMYCIN
     Dosage: 2 GRAM, Q8H
     Route: 042
  14. POLYMYXIN B. [Suspect]
     Active Substance: POLYMYXIN B
     Dosage: 1.5 MILLIGRAM/KILOGRAM, BID MAINTENANCE DOSE
     Route: 042
  15. LOSARTAN. [Concomitant]
     Active Substance: LOSARTAN
     Indication: HYPERTENSION
     Route: 065

REACTIONS (2)
  - Acute kidney injury [Recovered/Resolved]
  - Rhabdomyolysis [Unknown]
